FAERS Safety Report 26096600 (Version 2)
Quarter: 2025Q4

REPORT INFORMATION
  Report Type: Spontaneous
  Country: US (occurrence: US)
  Receive Date: 20251127
  Receipt Date: 20251204
  Transmission Date: 20260118
  Serious: No
  Sender: MERCK SHARP & DOHME LLC
  Company Number: US-009507513-2352527

PATIENT
  Sex: Female

DRUGS (1)
  1. SITAGLIPTIN PHOSPHATE [Suspect]
     Active Substance: SITAGLIPTIN PHOSPHATE
     Dosage: 1 TABLET (50MG) ONCE A DAY
     Route: 048

REACTIONS (4)
  - Blood glucose increased [Unknown]
  - Frustration tolerance decreased [Unknown]
  - Product use issue [Unknown]
  - Product dose omission issue [Unknown]
